FAERS Safety Report 12611081 (Version 4)
Quarter: 2016Q4

REPORT INFORMATION
  Report Type: Spontaneous
  Country: US (occurrence: US)
  Receive Date: 20160801
  Receipt Date: 20161010
  Transmission Date: 20170207
  Serious: Yes (Life-Threatening, Hospitalization, Disabling, Other)
  Sender: FDA-Public Use
  Company Number: US-009507513-1607USA010620

PATIENT
  Age: 83 Year
  Sex: Male
  Weight: 94.5 kg

DRUGS (10)
  1. KEYTRUDA [Suspect]
     Active Substance: PEMBROLIZUMAB
     Indication: METASTATIC MALIGNANT MELANOMA
     Dosage: 2 MG/KG, Q3W
     Route: 042
     Dates: start: 20160520, end: 20160520
  2. KEYTRUDA [Suspect]
     Active Substance: PEMBROLIZUMAB
     Indication: MALIGNANT MELANOMA
     Dosage: 2 MG/KG, Q3W
     Route: 042
     Dates: start: 20160609, end: 20160609
  3. VITAMINS (UNSPECIFIED) [Concomitant]
     Active Substance: VITAMINS
     Dosage: UNK UNK, UNKNOWN
     Route: 065
  4. METOPROLOL. [Concomitant]
     Active Substance: METOPROLOL
     Dosage: UNK
  5. COZAAR [Concomitant]
     Active Substance: LOSARTAN POTASSIUM
     Dosage: 50 MG, QD
     Route: 048
  6. FLOMAX [Concomitant]
     Active Substance: TAMSULOSIN HYDROCHLORIDE
     Dosage: UNK UNK, UNKNOWN
     Route: 065
  7. CHOLECALCIFEROL [Concomitant]
     Active Substance: CHOLECALCIFEROL
     Dosage: UNK UNK, UNKNOWN
     Route: 065
  8. NORCO [Concomitant]
     Active Substance: ACETAMINOPHEN\HYDROCODONE BITARTRATE
     Dosage: 10/325 MG, PRN
     Route: 065
  9. CLARINEX [Concomitant]
     Active Substance: DESLORATADINE
     Dosage: UNK UNK, UNKNOWN
     Route: 048
  10. ASPIRIN. [Concomitant]
     Active Substance: ASPIRIN
     Dosage: UNK UNK, UNKNOWN
     Route: 048

REACTIONS (18)
  - Troponin increased [Recovering/Resolving]
  - Myocarditis [Recovered/Resolved with Sequelae]
  - Tachycardia [Unknown]
  - Myopathy [Recovering/Resolving]
  - Abasia [Recovering/Resolving]
  - Gait disturbance [Not Recovered/Not Resolved]
  - Blood creatine phosphokinase MB increased [Recovering/Resolving]
  - Rhabdomyolysis [Recovering/Resolving]
  - Clostridium difficile colitis [Recovered/Resolved]
  - Muscular weakness [Recovering/Resolving]
  - Adverse drug reaction [Unknown]
  - Blood creatine phosphokinase increased [Recovering/Resolving]
  - Myopathy [Recovering/Resolving]
  - Blood pressure decreased [Unknown]
  - Myositis [Recovering/Resolving]
  - Abnormal behaviour [Unknown]
  - Mobility decreased [Recovering/Resolving]
  - Oedema peripheral [Unknown]

NARRATIVE: CASE EVENT DATE: 2016
